FAERS Safety Report 9833495 (Version 2)
Quarter: 2014Q2

REPORT INFORMATION
  Report Type: Spontaneous
  Country: US (occurrence: US)
  Receive Date: 20140122
  Receipt Date: 20140423
  Transmission Date: 20141212
  Serious: No
  Sender: FDA-Public Use
  Company Number: US-009507513-1401USA006671

PATIENT
  Age: 32 Year
  Sex: Female
  Weight: 72.56 kg

DRUGS (1)
  1. NEXPLANON [Suspect]
     Indication: CONTRACEPTION
     Dosage: IN HER LEFT ARM
     Route: 059
     Dates: start: 20131217, end: 20131227

REACTIONS (5)
  - Implant site pain [Recovering/Resolving]
  - Implant site bruising [Recovering/Resolving]
  - Implant site swelling [Recovering/Resolving]
  - Implant site oedema [Recovering/Resolving]
  - Device deployment issue [Recovered/Resolved]
